FAERS Safety Report 6376897-5 (Version None)
Quarter: 2009Q3

REPORT INFORMATION
  Report Type: 
  Country: None (occurrence: None)
  Receive Date: 20090925
  Receipt Date: 20090825
  Transmission Date: 20100115
  Serious: No
  Sender: FDA-Public Use
  Company Number: US-BAYER-200929975GPV

PATIENT
  Sex: Female

DRUGS (2)
  1. YASMIN [Suspect]
     Indication: HORMONE REPLACEMENT THERAPY
     Route: 048
  2. LEVOTHYROXINE SODIUM [Concomitant]
     Indication: DRUG USE FOR UNKNOWN INDICATION

REACTIONS (2)
  - BLOOD COPPER INCREASED [None]
  - CERULOPLASMIN INCREASED [None]
